FAERS Safety Report 18985678 (Version 1)
Quarter: 2021Q1

REPORT INFORMATION
  Report Type: Report from Study
  Country: AR (occurrence: AR)
  Receive Date: 20210309
  Receipt Date: 20210309
  Transmission Date: 20210420
  Serious: Yes (Other)
  Sender: FDA-Public Use
  Company Number: NVSC2021AR047865

PATIENT
  Sex: Male

DRUGS (1)
  1. VALSARTAN. [Suspect]
     Active Substance: VALSARTAN
     Indication: HYPERTENSION
     Dosage: UNK UNK, QD (START DATE SINCE 10 YEARS APPROX. STOP DATE: SINCE APPROX. A YEAR)
     Route: 065

REACTIONS (2)
  - Blood pressure inadequately controlled [Recovered/Resolved]
  - Diabetes mellitus [Recovered/Resolved]
